FAERS Safety Report 8846466 (Version 5)
Quarter: 2013Q2

REPORT INFORMATION
  Report Type: Spontaneous
  Country: US (occurrence: US)
  Receive Date: 20121017
  Receipt Date: 20130515
  Transmission Date: 20140414
  Serious: Yes (Hospitalization, Other)
  Sender: FDA-Public Use
  Company Number: US-PFIZER INC-2012256961

PATIENT
  Age: 52 Year
  Sex: Male
  Weight: 64.4 kg

DRUGS (10)
  1. LYRICA [Suspect]
     Indication: PAIN IN EXTREMITY
     Dosage: 200 MG, 1X/DAY
     Dates: start: 2009
  2. LYRICA [Suspect]
     Indication: PAIN
     Dosage: 200 MG, 2X/DAY
     Dates: start: 201210, end: 20121012
  3. LYRICA [Suspect]
     Indication: NEUROPATHY PERIPHERAL
  4. LYRICA [Suspect]
     Indication: PERIPHERAL NERVE INJURY
  5. LYRICA [Suspect]
     Indication: PAIN IN EXTREMITY
  6. LIDOCAINE HCL [Suspect]
     Indication: PAIN IN EXTREMITY
     Dosage: UNK
  7. HYDROCODONE [Suspect]
     Indication: PAIN
     Dosage: 500 MG, 3X/DAY
     Dates: start: 20121012
  8. ALPHA LIPOIC ACID [Concomitant]
     Dosage: 600 MG, 1X/DAY
  9. ASPIRIN [Concomitant]
     Dosage: 325 MG, 1X/DAY
  10. METFORMIN [Concomitant]
     Dosage: 500 MG X 2

REACTIONS (12)
  - Dyspepsia [Unknown]
  - Activities of daily living impaired [Not Recovered/Not Resolved]
  - Abasia [Not Recovered/Not Resolved]
  - Type 2 diabetes mellitus [Not Recovered/Not Resolved]
  - Diabetic neuropathy [Unknown]
  - Dysstasia [Not Recovered/Not Resolved]
  - Nerve injury [Unknown]
  - Insomnia [Not Recovered/Not Resolved]
  - Drug ineffective [Unknown]
  - Drug ineffective [Unknown]
  - Muscle spasms [Unknown]
  - Weight decreased [Unknown]
